FAERS Safety Report 12099956 (Version 2)
Quarter: 2016Q1

REPORT INFORMATION
  Report Type: Report from Study
  Country: FR (occurrence: FR)
  Receive Date: 20160222
  Receipt Date: 20160315
  Transmission Date: 20160526
  Serious: Yes (Hospitalization, Other)
  Sender: FDA-Public Use
  Company Number: FR-JNJFOC-20160216040

PATIENT
  Age: 36 Year
  Sex: Male

DRUGS (3)
  1. SIMPONI [Suspect]
     Active Substance: GOLIMUMAB
     Indication: ANKYLOSING SPONDYLITIS
     Dosage: THIRD INJECTION
     Route: 058
     Dates: start: 20160204
  2. SIMPONI [Suspect]
     Active Substance: GOLIMUMAB
     Indication: ANKYLOSING SPONDYLITIS
     Dosage: 4TH INJECTION
     Route: 058
     Dates: start: 20160305
  3. SIMPONI [Suspect]
     Active Substance: GOLIMUMAB
     Indication: ANKYLOSING SPONDYLITIS
     Route: 058
     Dates: start: 20151104, end: 201601

REACTIONS (2)
  - Appendicitis [Recovered/Resolved]
  - Peritonitis [Unknown]

NARRATIVE: CASE EVENT DATE: 2016
